FAERS Safety Report 4638980-1 (Version None)
Quarter: 2005Q2

REPORT INFORMATION
  Report Type: 
  Country: None (occurrence: None)
  Receive Date: 20050419
  Receipt Date: 20050408
  Transmission Date: 20051028
  Serious: Yes (Hospitalization)
  Sender: FDA-Public Use
  Company Number: US-MERCK-0504USA01665

PATIENT
  Sex: Female

DRUGS (2)
  1. VIOXX [Suspect]
     Indication: BACK PAIN
     Route: 048
     Dates: end: 20020321
  2. VIOXX [Suspect]
     Indication: NECK PAIN
     Route: 048
     Dates: end: 20020321

REACTIONS (1)
  - MYOCARDIAL INFARCTION [None]
